FAERS Safety Report 6095501-7 (Version None)
Quarter: 2009Q1

REPORT INFORMATION
  Report Type: 
  Country: None (occurrence: None)
  Receive Date: 20090227
  Receipt Date: 20080606
  Transmission Date: 20090719
  Serious: No
  Sender: FDA-Public Use
  Company Number: A0722886A

PATIENT
  Age: 60 Year
  Sex: Female
  Weight: 52.3 kg

DRUGS (7)
  1. LAMICTAL [Suspect]
     Indication: DEPRESSION
     Dosage: 25MG PER DAY
     Route: 048
     Dates: start: 20080408
  2. PAXIL [Suspect]
     Indication: DEPRESSION
     Dosage: 10MG PER DAY
     Route: 048
     Dates: start: 20030101
  3. LUNESTA [Suspect]
     Indication: INSOMNIA
     Dosage: 3MG AT NIGHT
     Route: 048
     Dates: start: 20080401, end: 20080401
  4. AMBIEN [Suspect]
     Indication: DRUG USE FOR UNKNOWN INDICATION
     Dosage: 10MG AT NIGHT
     Route: 048
  5. LEXAPRO [Suspect]
  6. HERBS [Concomitant]
  7. VITAMINS [Concomitant]

REACTIONS (13)
  - DIPLOPIA [None]
  - DRUG HYPERSENSITIVITY [None]
  - DRY MOUTH [None]
  - DYSGEUSIA [None]
  - EMOTIONAL DISORDER [None]
  - NERVOUSNESS [None]
  - RASH [None]
  - RASH PRURITIC [None]
  - RHINORRHOEA [None]
  - SOMNOLENCE [None]
  - STRESS [None]
  - TENSION [None]
  - TINNITUS [None]
